FAERS Safety Report 20207104 (Version 1)
Quarter: 2021Q4

REPORT INFORMATION
  Report Type: Spontaneous
  Country: AU (occurrence: None)
  Receive Date: 20211219
  Receipt Date: 20211219
  Transmission Date: 20220303
  Serious: Yes (Life-Threatening, Disabling)
  Sender: FDA-Public Use
  Company Number: None

PATIENT
  Age: 39 Year
  Sex: Female
  Weight: 50 kg

DRUGS (1)
  1. GADAVIST [Suspect]
     Active Substance: GADOBUTROL
     Indication: Magnetic resonance imaging abdominal
     Route: 042
     Dates: start: 20211111, end: 20211111

REACTIONS (11)
  - Dysgeusia [None]
  - Head discomfort [None]
  - Depressed level of consciousness [None]
  - Head discomfort [None]
  - Chills [None]
  - Chills [None]
  - Burning sensation [None]
  - Hypoaesthesia [None]
  - Hypoaesthesia [None]
  - Rash erythematous [None]
  - Skin lesion [None]

NARRATIVE: CASE EVENT DATE: 20211111
